FAERS Safety Report 10505704 (Version 3)
Quarter: 2015Q1

REPORT INFORMATION
  Report Type: Spontaneous
  Country: IT (occurrence: IT)
  Receive Date: 20141008
  Receipt Date: 20150217
  Transmission Date: 20150720
  Serious: Yes (Hospitalization)
  Sender: FDA-Public Use
  Company Number: IT-PFIZER INC-2014274405

PATIENT
  Age: 62 Year
  Sex: Male

DRUGS (4)
  1. VALDORM [Suspect]
     Active Substance: VALERIAN
     Indication: INSOMNIA
  2. HALCION [Suspect]
     Active Substance: TRIAZOLAM
     Indication: INSOMNIA
  3. VALDORM [Suspect]
     Active Substance: VALERIAN
     Indication: DRUG ABUSE
     Dosage: 150 MG, TOTAL
     Route: 048
     Dates: start: 20140907, end: 20140907
  4. HALCION [Suspect]
     Active Substance: TRIAZOLAM
     Indication: DRUG ABUSE
     Dosage: 1.5 MG, TOTAL
     Route: 048
     Dates: start: 20140907, end: 20140907

REACTIONS (2)
  - Drug abuse [Recovered/Resolved]
  - Agitation [Recovered/Resolved]

NARRATIVE: CASE EVENT DATE: 20140907
